FAERS Safety Report 21141320 (Version 1)
Quarter: 2022Q3

REPORT INFORMATION
  Report Type: Spontaneous
  Country: US (occurrence: None)
  Receive Date: 20220727
  Receipt Date: 20220727
  Transmission Date: 20221027
  Serious: Yes (Other)
  Sender: FDA-Public Use
  Company Number: None

PATIENT
  Age: 60 Year
  Sex: Female
  Weight: 66.6 kg

DRUGS (5)
  1. PAXLOVID [Suspect]
     Active Substance: NIRMATRELVIR\RITONAVIR
     Indication: COVID-19
     Dosage: FREQUENCY : TWICE A DAY;?
     Route: 048
     Dates: start: 20220725
  2. MUCINEX [Concomitant]
     Active Substance: GUAIFENESIN
     Dates: start: 20220723
  3. TYLENOL [Concomitant]
     Active Substance: ACETAMINOPHEN
     Dates: start: 20220723
  4. MENTHOL [Concomitant]
     Active Substance: MENTHOL
     Dates: start: 20220723
  5. ADVIL [Concomitant]
     Active Substance: IBUPROFEN
     Dates: start: 20220723

REACTIONS (3)
  - Dysgeusia [None]
  - Dizziness [None]
  - Syncope [None]

NARRATIVE: CASE EVENT DATE: 20220725
